FAERS Safety Report 11124258 (Version 1)
Quarter: 2015Q2

REPORT INFORMATION
  Report Type: Spontaneous
  Country: US (occurrence: None)
  Receive Date: 20150518
  Receipt Date: 20150518
  Transmission Date: 20150821
  Serious: Yes (Hospitalization)
  Sender: FDA-Public Use
  Company Number: IPC201505-000290

PATIENT
  Age: 44 Year
  Sex: Female

DRUGS (3)
  1. CHLORTHALIDONE (CHLORTHALIDONE) (CHLORTHALIDONE) [Suspect]
     Active Substance: CHLORTHALIDONE
  2. LISINOPRIL (LISINOPRIL) (LISINOPRIL) [Suspect]
     Active Substance: LISINOPRIL
  3. ATENOLOL (ATENOLOL) (ATENOLOL) [Suspect]
     Active Substance: ATENOLOL

REACTIONS (11)
  - Unresponsive to stimuli [None]
  - Cardiac disorder [None]
  - Diastolic dysfunction [None]
  - Renal failure [None]
  - Continuous haemodiafiltration [None]
  - Intentional overdose [None]
  - Hypotension [None]
  - Acute respiratory distress syndrome [None]
  - General physical health deterioration [None]
  - Sinus bradycardia [None]
  - Blood glucose increased [None]
